FAERS Safety Report 21548428 (Version 1)
Quarter: 2022Q4

REPORT INFORMATION
  Report Type: Spontaneous
  Country: US (occurrence: US)
  Receive Date: 20221103
  Receipt Date: 20221103
  Transmission Date: 20230113
  Serious: No
  Sender: FDA-Public Use
  Company Number: US-SA-SAC20221030000411

PATIENT
  Sex: Female

DRUGS (21)
  1. DUPIXENT [Suspect]
     Active Substance: DUPILUMAB
     Indication: Asthma
     Dosage: 200 MG, QOW
     Route: 058
     Dates: start: 20220309
  2. BREO ELLIPTA [Concomitant]
     Active Substance: FLUTICASONE FUROATE\VILANTEROL TRIFENATATE
  3. CLOBETASOL [Concomitant]
     Active Substance: CLOBETASOL
  4. CYCLOBENZAPRINE [Concomitant]
     Active Substance: CYCLOBENZAPRINE
  5. ATROPINE\DIPHENOXYLATE [Concomitant]
     Active Substance: ATROPINE\DIPHENOXYLATE
  6. EPINEPHRINE [Concomitant]
     Active Substance: EPINEPHRINE
  7. FLONASE [Concomitant]
     Active Substance: FLUTICASONE PROPIONATE
  8. GLASSIA [Concomitant]
     Active Substance: .ALPHA.1-PROTEINASE INHIBITOR HUMAN
  9. HEP-LOCK [HEPARIN] [Concomitant]
  10. HYDROXYCHLOROQUINE [Concomitant]
     Active Substance: HYDROXYCHLOROQUINE
  11. HYOSCYAMINE [Concomitant]
     Active Substance: HYOSCYAMINE
  12. JARDIANCE [Concomitant]
     Active Substance: EMPAGLIFLOZIN
  13. LEVOCETIRIZINE DIHYDROCHLORIDE [Concomitant]
     Active Substance: LEVOCETIRIZINE DIHYDROCHLORIDE
  14. LORATADINE [Concomitant]
     Active Substance: LORATADINE
  15. MELOXICAM [Concomitant]
     Active Substance: MELOXICAM
  16. OMEPRAZOLE [Concomitant]
     Active Substance: OMEPRAZOLE
  17. OZEMPIC [Concomitant]
     Active Substance: SEMAGLUTIDE
  18. SERTRALINE [Concomitant]
     Active Substance: SERTRALINE HYDROCHLORIDE
  19. SODIUM CHLORIDE [Concomitant]
     Active Substance: SODIUM CHLORIDE
  20. VENTOLIN HFA [Concomitant]
     Active Substance: ALBUTEROL SULFATE
  21. VITAMIN D3 [Concomitant]
     Active Substance: CHOLECALCIFEROL

REACTIONS (3)
  - Impaired quality of life [Not Recovered/Not Resolved]
  - Asthma [Not Recovered/Not Resolved]
  - Rash [Not Recovered/Not Resolved]
